FAERS Safety Report 19972805 (Version 1)
Quarter: 2021Q4

REPORT INFORMATION
  Report Type: Spontaneous
  Country: US (occurrence: US)
  Receive Date: 20211019
  Receipt Date: 20211019
  Transmission Date: 20220304
  Serious: Yes (Other)
  Sender: FDA-Public Use
  Company Number: None

PATIENT
  Age: 80 Year
  Sex: Male
  Weight: 102.15 kg

DRUGS (4)
  1. HALOPERIDOL [Suspect]
     Active Substance: HALOPERIDOL
     Indication: Aggression
     Route: 048
     Dates: end: 20210603
  2. LOSARTAN [Concomitant]
     Active Substance: LOSARTAN
  3. ATORVASTATIN [Concomitant]
     Active Substance: ATORVASTATIN
  4. LEVOTHYROXINE [Concomitant]
     Active Substance: LEVOTHYROXINE

REACTIONS (14)
  - Aggression [None]
  - Dizziness [None]
  - Dyspnoea [None]
  - Gait disturbance [None]
  - Gait disturbance [None]
  - Gait disturbance [None]
  - Reduced facial expression [None]
  - Bradykinesia [None]
  - Hypotension [None]
  - Asthenia [None]
  - Blood pressure orthostatic [None]
  - Dizziness [None]
  - Pain in extremity [None]
  - Muscular weakness [None]

NARRATIVE: CASE EVENT DATE: 20210524
